FAERS Safety Report 9121141 (Version 1)
Quarter: 2013Q1

REPORT INFORMATION
  Report Type: Spontaneous
  Country: FR (occurrence: FR)
  Receive Date: 20130226
  Receipt Date: 20130226
  Transmission Date: 20140127
  Serious: Yes (Hospitalization)
  Sender: FDA-Public Use
  Company Number: FR-ROCHE-1194727

PATIENT
  Age: 17 Year
  Sex: Female

DRUGS (4)
  1. ROCEPHINE [Suspect]
     Indication: TOOTHACHE
     Route: 042
  2. ROCEPHINE [Suspect]
     Indication: PYREXIA
  3. ROCEPHINE [Suspect]
     Indication: DYSPHAGIA
  4. ROCEPHINE [Suspect]
     Indication: GENERAL PHYSICAL HEALTH DETERIORATION

REACTIONS (6)
  - Hypersensitivity [Recovered/Resolved]
  - Dyspnoea [Recovered/Resolved]
  - Cough [Recovered/Resolved]
  - Pruritus [Recovered/Resolved]
  - Urticaria papular [Recovered/Resolved]
  - Pain in extremity [Recovered/Resolved]
